FAERS Safety Report 9706236 (Version 1)
Quarter: 2013Q4

REPORT INFORMATION
  Report Type: Spontaneous
  Country: ES (occurrence: ES)
  Receive Date: 20131125
  Receipt Date: 20131125
  Transmission Date: 20140711
  Serious: Yes (Hospitalization)
  Sender: FDA-Public Use
  Company Number: ES-ROCHE-1307141

PATIENT
  Age: 42 Month
  Sex: Male

DRUGS (6)
  1. CELLCEPT [Suspect]
     Indication: RENAL TRANSPLANT
     Route: 048
     Dates: start: 20121105, end: 20130308
  2. VALCYTE [Suspect]
     Indication: CYTOMEGALOVIRUS INFECTION
     Route: 048
     Dates: start: 201212, end: 20130305
  3. MODIGRAF [Concomitant]
     Indication: RENAL TRANSPLANT
     Route: 048
     Dates: start: 20121105
  4. MYCOSTATIN [Concomitant]
     Indication: PROPHYLAXIS
     Route: 048
     Dates: start: 201212
  5. SEPTRIN [Concomitant]
     Indication: PROPHYLAXIS
     Route: 048
     Dates: start: 201212
  6. URBASON (SPAIN) [Concomitant]
     Indication: RENAL TRANSPLANT
     Route: 048

REACTIONS (1)
  - Agranulocytosis [Recovered/Resolved]
